FAERS Safety Report 12203901 (Version 1)
Quarter: 2016Q1

REPORT INFORMATION
  Report Type: Spontaneous
  Country: TR (occurrence: TR)
  Receive Date: 20160323
  Receipt Date: 20160323
  Transmission Date: 20160526
  Serious: Yes (Other)
  Sender: FDA-Public Use
  Company Number: TR-BAYER-2016-050000

PATIENT
  Age: 70 Year
  Sex: Female

DRUGS (5)
  1. AVELOX [Suspect]
     Active Substance: MOXIFLOXACIN HYDROCHLORIDE
     Indication: BRONCHITIS
     Dosage: UNK
  2. CONIEL [Concomitant]
     Active Substance: BENIDIPINE HYDROCHLORIDE
     Dosage: UNK
  3. AMLODIPINE [Concomitant]
     Active Substance: AMLODIPINE BESYLATE
     Dosage: UNK
  4. METFORMIN [Concomitant]
     Active Substance: METFORMIN HYDROCHLORIDE
     Dosage: UNK
  5. INSULIN [Concomitant]
     Active Substance: INSULIN NOS
     Dosage: UNK

REACTIONS (11)
  - Abnormal dreams [None]
  - Vitamin B12 decreased [None]
  - Hyperacusis [None]
  - Confusional state [None]
  - Brain injury [None]
  - Unresponsive to stimuli [None]
  - Mood altered [None]
  - Vitamin D decreased [None]
  - Depression [None]
  - Aphasia [None]
  - Blood iron decreased [None]
